FAERS Safety Report 17009618 (Version 1)
Quarter: 2019Q4

REPORT INFORMATION
  Report Type: Spontaneous
  Country: US (occurrence: US)
  Receive Date: 20191108
  Receipt Date: 20191108
  Transmission Date: 20200122
  Serious: Yes (Hospitalization, Disabling)
  Sender: FDA-Public Use
  Company Number: US-PFIZER INC-2019478144

PATIENT
  Age: 49 Year
  Sex: Male

DRUGS (1)
  1. CHANTIX [Suspect]
     Active Substance: VARENICLINE TARTRATE
     Indication: SMOKING CESSATION THERAPY
     Dosage: 1 MG, UNK (FOUR CONTINUING WEEKS SO 1 MG, 56 TABLETS)

REACTIONS (4)
  - Bedridden [Unknown]
  - Gait disturbance [Unknown]
  - Cerebrovascular accident [Unknown]
  - Paralysis [Unknown]
